FAERS Safety Report 15122807 (Version 1)
Quarter: 2018Q3

REPORT INFORMATION
  Report Type: Spontaneous
  Country: JP (occurrence: JP)
  Receive Date: 20180709
  Receipt Date: 20180709
  Transmission Date: 20181010
  Serious: Yes (Other)
  Sender: FDA-Public Use
  Company Number: JP-JNJFOC-20180703319

PATIENT

DRUGS (3)
  1. LENALIDOMIDE [Concomitant]
     Active Substance: LENALIDOMIDE
     Indication: PLASMA CELL MYELOMA
     Route: 048
  2. DEXAMETHASONE. [Concomitant]
     Active Substance: DEXAMETHASONE
     Indication: PLASMA CELL MYELOMA
     Route: 065
  3. DARZALEX [Suspect]
     Active Substance: DARATUMUMAB
     Indication: PLASMA CELL MYELOMA
     Route: 041

REACTIONS (9)
  - Febrile neutropenia [Unknown]
  - Neutropenia [Unknown]
  - Haemolysis [Unknown]
  - Thrombocytopenia [Unknown]
  - Lung disorder [Unknown]
  - Lymphopenia [Unknown]
  - Anaemia [Unknown]
  - Pneumonia bacterial [Unknown]
  - Infusion related reaction [Unknown]
